FAERS Safety Report 25459436 (Version 1)
Quarter: 2025Q2

REPORT INFORMATION
  Report Type: Spontaneous
  Country: US (occurrence: US)
  Receive Date: 20250620
  Receipt Date: 20250620
  Transmission Date: 20250717
  Serious: No
  Sender: EMD SERONO INC
  Company Number: US-Merck Healthcare KGaA-2025029749

PATIENT
  Sex: Female

DRUGS (2)
  1. MAVENCLAD [Suspect]
     Active Substance: CLADRIBINE
     Indication: Multiple sclerosis
     Dates: start: 20241007
  2. MAVENCLAD [Suspect]
     Active Substance: CLADRIBINE
     Dates: start: 20241104, end: 20241108

REACTIONS (2)
  - Herpes zoster [Unknown]
  - Asthenia [Unknown]
